FAERS Safety Report 11393912 (Version 1)
Quarter: 2015Q3

REPORT INFORMATION
  Report Type: Spontaneous
  Country: US (occurrence: None)
  Receive Date: 20150817
  Receipt Date: 20150817
  Transmission Date: 20151125
  Serious: Yes (Death, Hospitalization)
  Sender: FDA-Public Use
  Company Number: CPI 7018

PATIENT
  Age: 62 Year
  Sex: Male

DRUGS (5)
  1. N-ACETYLCYSTEINE [Suspect]
     Active Substance: ACETYLCYSTEINE
     Indication: LIVER INJURY
  2. FRESH FROZEN PLASMA [Concomitant]
     Active Substance: HUMAN PLASMA
  3. LIVERGOL (SILIMARIN) [Concomitant]
  4. N-ACETYLCYSTEINE [Suspect]
     Active Substance: ACETYLCYSTEINE
     Indication: ACUTE KIDNEY INJURY
  5. HEMODIALYSIS [Concomitant]
     Active Substance: DEVICE

REACTIONS (4)
  - International normalised ratio increased [None]
  - Generalised tonic-clonic seizure [None]
  - Cardio-respiratory arrest [None]
  - Hepatitis fulminant [None]

NARRATIVE: CASE EVENT DATE: 201309
